FAERS Safety Report 23531581 (Version 2)
Quarter: 2024Q1

REPORT INFORMATION
  Report Type: Spontaneous
  Country: IT (occurrence: IT)
  Receive Date: 20240216
  Receipt Date: 20240223
  Transmission Date: 20240409
  Serious: Yes (Other)
  Sender: FDA-Public Use
  Company Number: IT-ROCHE-3494450

PATIENT
  Age: 71 Year
  Sex: Male
  Weight: 83 kg

DRUGS (16)
  1. VENETOCLAX [Suspect]
     Active Substance: VENETOCLAX
     Indication: Richter^s syndrome
     Route: 048
     Dates: start: 20230331, end: 20230502
  2. GAZYVA [Suspect]
     Active Substance: OBINUTUZUMAB
     Indication: Richter^s syndrome
     Route: 042
     Dates: start: 20230331, end: 20230502
  3. OXALIPLATIN [Suspect]
     Active Substance: OXALIPLATIN
     Indication: Richter^s syndrome
     Route: 065
     Dates: start: 20230801, end: 20230830
  4. CYCLOPHOSPHAMIDE [Suspect]
     Active Substance: CYCLOPHOSPHAMIDE
     Indication: Richter^s syndrome
     Route: 065
     Dates: start: 20230516, end: 20230628
  5. CYTARABINE [Suspect]
     Active Substance: CYTARABINE
     Indication: Richter^s syndrome
     Route: 065
     Dates: start: 20230801, end: 20230830
  6. PREDNISONE [Suspect]
     Active Substance: PREDNISONE
     Indication: Richter^s syndrome
     Route: 065
     Dates: start: 20230516, end: 20230628
  7. RITUXIMAB [Suspect]
     Active Substance: RITUXIMAB
     Indication: Richter^s syndrome
     Route: 065
     Dates: start: 20230801, end: 20230823
  8. RITUXIMAB [Suspect]
     Active Substance: RITUXIMAB
     Indication: Richter^s syndrome
     Route: 065
     Dates: start: 20230919, end: 20231020
  9. RITUXIMAB [Suspect]
     Active Substance: RITUXIMAB
     Indication: Richter^s syndrome
     Route: 065
     Dates: start: 20230516, end: 20230628
  10. PREDNISOLONE [Suspect]
     Active Substance: PREDNISOLONE
     Indication: Richter^s syndrome
     Route: 065
     Dates: start: 20230919, end: 20231020
  11. DEXAMETHASONE [Suspect]
     Active Substance: DEXAMETHASONE
     Indication: Richter^s syndrome
     Route: 065
     Dates: start: 20230801, end: 20230823
  12. DOXORUBICIN [Suspect]
     Active Substance: DOXORUBICIN
     Indication: Richter^s syndrome
     Route: 065
     Dates: start: 20230516, end: 20230628
  13. IFOSFAMIDE [Suspect]
     Active Substance: IFOSFAMIDE
     Indication: Richter^s syndrome
     Route: 065
     Dates: start: 20230919, end: 20231020
  14. GEMCITABINE [Suspect]
     Active Substance: GEMCITABINE
     Indication: Richter^s syndrome
     Route: 065
     Dates: start: 20230919, end: 20231020
  15. VINCRISTINE [Suspect]
     Active Substance: VINCRISTINE
     Indication: Richter^s syndrome
     Route: 065
     Dates: start: 20230516, end: 20230628
  16. VINORELBINE [Suspect]
     Active Substance: VINORELBINE TARTRATE
     Indication: Richter^s syndrome
     Route: 065
     Dates: start: 20230919, end: 20231020

REACTIONS (5)
  - Pulmonary embolism [Not Recovered/Not Resolved]
  - Richter^s syndrome [Unknown]
  - Blood lactate dehydrogenase increased [Unknown]
  - Thrombosis [Unknown]
  - Vena cava thrombosis [Unknown]

NARRATIVE: CASE EVENT DATE: 20231001
